FAERS Safety Report 4997871-7 (Version None)
Quarter: 2006Q2

REPORT INFORMATION
  Report Type: 
  Country: None (occurrence: None)
  Receive Date: 20060508
  Receipt Date: 20060508
  Transmission Date: 20061013
  Serious: Yes (Hospitalization, Disabling)
  Sender: FDA-Public Use
  Company Number: None

PATIENT
  Sex: Female

DRUGS (4)
  1. LEVAQUIN [Suspect]
     Indication: DIVERTICULITIS
     Dosage: 500 MG QD PO
     Route: 048
     Dates: start: 20051014, end: 20051028
  2. FLAGYL [Concomitant]
  3. CLINDAMYCIN [Concomitant]
  4. DARVOCET-N 100 [Concomitant]

REACTIONS (7)
  - ARTHROPATHY [None]
  - JOINT SPRAIN [None]
  - MENISCUS LESION [None]
  - MUSCLE RUPTURE [None]
  - TENDON DISORDER [None]
  - TENDON INJURY [None]
  - TENOSYNOVITIS [None]
